FAERS Safety Report 8565477-9 (Version None)
Quarter: 2012Q3

REPORT INFORMATION
  Report Type: 
  Country: None (occurrence: None)
  Receive Date: 20120724
  Receipt Date: 20120716
  Transmission Date: 20120928
  Serious: Yes (Death, Hospitalization)
  Sender: FDA-Public Use
  Company Number: US-JNJFOC-20120708265

PATIENT
  Age: 74 Year
  Sex: Male
  Weight: 66 kg

DRUGS (8)
  1. LISINOPRIL [Concomitant]
  2. CIPROFLOXACIN (CIPROFLOXACIN) [Concomitant]
  3. DIGOXIN [Concomitant]
  4. TAMSULOSIN HCL [Concomitant]
  5. DECITABINE [Suspect]
     Indication: ACUTE MYELOID LEUKAEMIA
     Dosage: 20 MG/M2, INTRAVENOUS, 20 MG/M2, INTRAVENOUS
     Route: 042
     Dates: start: 20120611, end: 20120620
  6. DECITABINE [Suspect]
     Indication: ACUTE MYELOID LEUKAEMIA
     Dosage: 20 MG/M2, INTRAVENOUS, 20 MG/M2, INTRAVENOUS
     Route: 042
     Dates: start: 20120514, end: 20120523
  7. ACYCLOVIR [Concomitant]
  8. FINASTERIDE [Concomitant]

REACTIONS (3)
  - FUNGAEMIA [None]
  - HYPOTENSION [None]
  - RESPIRATORY DISORDER [None]
